APPROVED DRUG PRODUCT: GYNAZOLE-1
Active Ingredient: BUTOCONAZOLE NITRATE
Strength: 2%
Dosage Form/Route: CREAM;VAGINAL
Application: A200923 | Product #001
Applicant: PADAGIS ISRAEL PHARMACEUTICALS LTD
Approved: May 18, 2012 | RLD: No | RS: Yes | Type: RX